FAERS Safety Report 15286246 (Version 1)
Quarter: 2018Q3

REPORT INFORMATION
  Report Type: Spontaneous
  Country: NL (occurrence: NL)
  Receive Date: 20180816
  Receipt Date: 20180816
  Transmission Date: 20181010
  Serious: Yes (Other)
  Sender: FDA-Public Use
  Company Number: NL-VERTEX PHARMACEUTICALS-2018-005867

PATIENT

DRUGS (1)
  1. ORKAMBI [Suspect]
     Active Substance: IVACAFTOR\LUMACAFTOR
     Indication: CYSTIC FIBROSIS
     Dosage: LOWER DOSE
     Route: 048
     Dates: start: 201712, end: 201807

REACTIONS (3)
  - Gastrointestinal oedema [Unknown]
  - Hepatic cirrhosis [Unknown]
  - Portal hypertension [Unknown]

NARRATIVE: CASE EVENT DATE: 2018
